FAERS Safety Report 9128273 (Version 1)
Quarter: 2013Q1

REPORT INFORMATION
  Report Type: Spontaneous
  Country: US (occurrence: US)
  Receive Date: 20130228
  Receipt Date: 20130228
  Transmission Date: 20140127
  Serious: No
  Sender: FDA-Public Use
  Company Number: US-ABBOTT-13P-163-1037956-00

PATIENT
  Age: 70 Year
  Sex: Male
  Weight: 104.42 kg

DRUGS (1)
  1. ANDROGEL [Suspect]
     Indication: BLOOD TESTOSTERONE DECREASED
     Dosage: 2 PUMPS
     Route: 061
     Dates: start: 20130103, end: 20130105

REACTIONS (2)
  - Application site rash [Recovered/Resolved]
  - Application site erythema [Recovered/Resolved]
